FAERS Safety Report 12076758 (Version 1)
Quarter: 2016Q1

REPORT INFORMATION
  Report Type: Spontaneous
  Country: US (occurrence: US)
  Receive Date: 20160215
  Receipt Date: 20160215
  Transmission Date: 20160526
  Serious: No
  Sender: FDA-Public Use
  Company Number: US-009507513-1602USA006755

PATIENT
  Age: 25 Year
  Sex: Female
  Weight: 50.79 kg

DRUGS (1)
  1. NEXPLANON [Suspect]
     Active Substance: ETONOGESTREL
     Indication: CONTRACEPTION
     Dosage: 3 YEAR IMPLANT,IN LEFT ARM
     Dates: start: 20150715

REACTIONS (2)
  - Metrorrhagia [Not Recovered/Not Resolved]
  - Metrorrhagia [Unknown]

NARRATIVE: CASE EVENT DATE: 20150815
